APPROVED DRUG PRODUCT: BREVITAL SODIUM
Active Ingredient: METHOHEXITAL SODIUM
Strength: 2.5GM/VIAL
Dosage Form/Route: INJECTABLE;INJECTION
Application: N011559 | Product #002
Applicant: PH HEALTH LTD
Approved: Approved Prior to Jan 1, 1982 | RLD: Yes | RS: No | Type: DISCN